FAERS Safety Report 8162918-6 (Version None)
Quarter: 2012Q1

REPORT INFORMATION
  Report Type: 
  Country: None (occurrence: None)
  Receive Date: 20120224
  Receipt Date: 20120221
  Transmission Date: 20120608
  Serious: No
  Sender: FDA-Public Use
  Company Number: US-PFIZER INC-2012046060

PATIENT
  Sex: Male
  Weight: 95.238 kg

DRUGS (7)
  1. OXYCODONE AND ACETAMINOPHEN [Concomitant]
     Dosage: 10/650 MG, 3X/DAY
     Route: 048
  2. GABAPENTIN [Suspect]
     Indication: HERPES ZOSTER OPHTHALMIC
     Dosage: 300 MG, 3X/DAY
     Route: 048
     Dates: start: 20111201, end: 20120221
  3. NORTRIPTYLINE [Concomitant]
     Dosage: UNK, 1X/DAY
     Route: 048
  4. VENTOLIN [Concomitant]
     Dosage: UNK
  5. GABAPENTIN [Suspect]
     Indication: POST HERPETIC NEURALGIA
  6. DILTIAZEM [Concomitant]
     Indication: HYPERTENSION
     Dosage: 240 MG, 1X/DAY
  7. ENALAPRIL [Concomitant]
     Indication: HYPERTENSION
     Dosage: 10 MG, 1X/DAY

REACTIONS (2)
  - DRUG INEFFECTIVE [None]
  - PAIN [None]
